FAERS Safety Report 15435653 (Version 2)
Quarter: 2018Q3

REPORT INFORMATION
  Report Type: Spontaneous
  Country: JP (occurrence: JP)
  Receive Date: 20180927
  Receipt Date: 20180927
  Transmission Date: 20181010
  Serious: Yes (Other)
  Sender: FDA-Public Use
  Company Number: PHHY2018JP103211

PATIENT
  Sex: Female

DRUGS (4)
  1. PREDNISOLONE. [Suspect]
     Active Substance: PREDNISOLONE
     Indication: SYSTEMIC LUPUS ERYTHEMATOSUS
     Dosage: 13 MG, UNK
     Route: 065
  2. MOFEZOLAC [Concomitant]
     Active Substance: MOFEZOLAC
     Indication: PAIN
     Route: 048
  3. CEFDINIR. [Concomitant]
     Active Substance: CEFDINIR
     Indication: SYSTEMIC LUPUS ERYTHEMATOSUS
     Route: 048
  4. ACYCLOVIR. [Concomitant]
     Active Substance: ACYCLOVIR
     Indication: HERPES ZOSTER
     Dosage: 750 MG, QD
     Route: 041

REACTIONS (5)
  - Septic shock [Unknown]
  - Pseudomonas infection [Unknown]
  - Pyelonephritis [Unknown]
  - Urinary tract infection [Unknown]
  - Dysuria [Unknown]
